FAERS Safety Report 7245262-0 (Version None)
Quarter: 2011Q1

REPORT INFORMATION
  Report Type: 
  Country: None (occurrence: None)
  Receive Date: 20110126
  Receipt Date: 20110119
  Transmission Date: 20110831
  Serious: Yes (Hospitalization)
  Sender: FDA-Public Use
  Company Number: NL-MEDIMMUNE-MEDI-0012291

PATIENT
  Sex: Female
  Weight: 6.4 kg

DRUGS (5)
  1. SYNAGIS [Suspect]
     Route: 030
     Dates: start: 20100927, end: 20101220
  2. BECLOMETASONE DIPROPIONATE [Concomitant]
  3. RANITIDINE HYDROCHLORIDE [Concomitant]
  4. ALBUTEROL [Concomitant]
     Route: 055
  5. SYNAGIS [Suspect]
     Route: 030
     Dates: start: 20110117, end: 20110117

REACTIONS (1)
  - RESPIRATORY TRACT INFECTION [None]
